FAERS Safety Report 5336831-3 (Version None)
Quarter: 2007Q2

REPORT INFORMATION
  Report Type: 
  Country: None (occurrence: None)
  Receive Date: 20070524
  Receipt Date: 20070524
  Transmission Date: 20071010
  Serious: Yes (Other)
  Sender: FDA-Public Use
  Company Number: None

PATIENT
  Age: 56 Year
  Sex: Male
  Weight: 58.9676 kg

DRUGS (1)
  1. OXCARBAZEPINE [Suspect]
     Indication: EPILEPSY
     Dosage: 1200 MG BID
     Dates: start: 20050101

REACTIONS (2)
  - HYPONATRAEMIA [None]
  - NO THERAPEUTIC RESPONSE [None]
